FAERS Safety Report 8293342-3 (Version None)
Quarter: 2012Q2

REPORT INFORMATION
  Report Type: 
  Country: None (occurrence: None)
  Receive Date: 20120417
  Receipt Date: 20110829
  Transmission Date: 20120825
  Serious: No
  Sender: FDA-Public Use
  Company Number: US-ASTRAZENECA-2011SE52024

PATIENT
  Age: 13027 Day
  Sex: Male
  Weight: 54.4 kg

DRUGS (3)
  1. BENE FIBER [Concomitant]
     Indication: EXCESSIVE DIETARY FIBRE INTAKE
  2. NEXIUM [Suspect]
     Indication: GASTROOESOPHAGEAL REFLUX DISEASE
     Route: 048
     Dates: start: 20110727
  3. ALIGN [Concomitant]
     Indication: DYSPEPSIA

REACTIONS (4)
  - DIARRHOEA [None]
  - DRUG DOSE OMISSION [None]
  - GASTROOESOPHAGEAL REFLUX DISEASE [None]
  - CONSTIPATION [None]
